FAERS Safety Report 24979021 (Version 2)
Quarter: 2025Q1

REPORT INFORMATION
  Report Type: Report from Study
  Country: ES (occurrence: ES)
  Receive Date: 20250218
  Receipt Date: 20250227
  Transmission Date: 20250409
  Serious: Yes (Other)
  Sender: ABBVIE
  Company Number: ES-ABBVIE-6115714

PATIENT
  Age: 89 Year
  Sex: Female

DRUGS (2)
  1. CARBIDOPA\LEVODOPA [Suspect]
     Active Substance: CARBIDOPA\LEVODOPA
     Indication: Parkinson^s disease
     Route: 050
     Dates: start: 20141127
  2. CARBIDOPA\LEVODOPA [Suspect]
     Active Substance: CARBIDOPA\LEVODOPA

REACTIONS (7)
  - Duodenal obstruction [Unknown]
  - Stoma site discharge [Not Recovered/Not Resolved]
  - Stoma site pain [Recovering/Resolving]
  - Stoma site irritation [Recovering/Resolving]
  - Stoma site erythema [Recovered/Resolved]
  - General physical health deterioration [Unknown]
  - Stoma site inflammation [Recovering/Resolving]

NARRATIVE: CASE EVENT DATE: 20250101
